FAERS Safety Report 5962673-1 (Version None)
Quarter: 2008Q4

REPORT INFORMATION
  Report Type: 
  Country: None (occurrence: None)
  Receive Date: 20081124
  Receipt Date: 20081112
  Transmission Date: 20090506
  Serious: Yes (Hospitalization, Other)
  Sender: FDA-Public Use
  Company Number: US-ABBOTT-08P-163-0487510-00

PATIENT
  Sex: Female
  Weight: 63.56 kg

DRUGS (11)
  1. DEPAKENE [Suspect]
     Indication: CONVULSION
     Route: 048
     Dates: start: 19781001
  2. DEPAKOTE ER [Suspect]
     Indication: CONVULSION
     Route: 048
  3. INSULIN ASPART [Concomitant]
     Indication: DIABETES MELLITUS
     Dosage: SLIDING SCALE
  4. SIMVASTATIN [Concomitant]
     Indication: BLOOD CHOLESTEROL
     Route: 048
  5. LEVOTHYROXINE SODIUM [Concomitant]
     Indication: HYPOTHYROIDISM
     Route: 048
  6. ESTRADIOL [Concomitant]
     Indication: HORMONE REPLACEMENT THERAPY
     Route: 048
  7. PRINZIDE [Concomitant]
     Indication: BLOOD PRESSURE
     Dosage: 20/12.5
     Route: 048
  8. ATENOLOL [Concomitant]
     Indication: BLOOD PRESSURE
     Route: 048
  9. TEMAZEPAM [Concomitant]
     Indication: INSOMNIA
     Route: 048
  10. CYANOCOBALAMIN-TANNIN COMPLEX [Concomitant]
     Indication: VITAMIN B12
     Route: 050
  11. ACETYLSALICYLIC ACID SRT [Concomitant]
     Indication: DRUG USE FOR UNKNOWN INDICATION
     Route: 048

REACTIONS (2)
  - DIABETES MELLITUS [None]
  - PANCREATITIS [None]
